FAERS Safety Report 21817318 (Version 7)
Quarter: 2023Q2

REPORT INFORMATION
  Report Type: Report from Study
  Country: US (occurrence: US)
  Receive Date: 20230104
  Receipt Date: 20230605
  Transmission Date: 20230721
  Serious: No
  Sender: FDA-Public Use
  Company Number: US-002147023-NVSC2023US001491

PATIENT
  Age: 40 Year
  Sex: Female

DRUGS (1)
  1. KESIMPTA [Suspect]
     Active Substance: OFATUMUMAB
     Indication: Product used for unknown indication
     Dosage: UNK, QMO
     Route: 065
     Dates: start: 20221125

REACTIONS (15)
  - Head discomfort [Recovered/Resolved]
  - Cardiac discomfort [Recovered/Resolved]
  - Dental caries [Unknown]
  - Headache [Recovered/Resolved]
  - Nausea [Recovered/Resolved]
  - Facial pain [Unknown]
  - Dry mouth [Unknown]
  - Dyspnoea [Recovered/Resolved]
  - Throat tightness [Unknown]
  - COVID-19 [Unknown]
  - Pyrexia [Unknown]
  - Dysphonia [Unknown]
  - Blood pressure increased [Recovered/Resolved]
  - Chest discomfort [Recovered/Resolved]
  - Inappropriate schedule of product administration [Unknown]

NARRATIVE: CASE EVENT DATE: 20221125
